FAERS Safety Report 5126206-4 (Version None)
Quarter: 2006Q3

REPORT INFORMATION
  Report Type: 
  Country: None (occurrence: None)
  Receive Date: 20060824
  Receipt Date: 20060427
  Transmission Date: 20061208
  Serious: Yes (Hospitalization)
  Sender: FDA-Public Use
  Company Number: WAES 0604USA04291

PATIENT
  Sex: Female
  Weight: 67.1324 kg

DRUGS (8)
  1. VYTORIN [Suspect]
     Indication: DRUG USE FOR UNKNOWN INDICATION
     Dosage: 10-20 MG /DAILY/PO
     Route: 048
     Dates: start: 20060223
  2. BENICAR [Concomitant]
  3. NORVASC [Concomitant]
  4. TOPRAL XL TABLETS [Concomitant]
  5. ASPIRIN [Concomitant]
  6. CHLORTHALIDONE [Concomitant]
  7. METFORMIN [Concomitant]
  8. POTASSIUM CHLORIDE [Concomitant]

REACTIONS (4)
  - ALANINE AMINOTRANSFERASE INCREASED [None]
  - ASPARTATE AMINOTRANSFERASE INCREASED [None]
  - PANCREATITIS [None]
  - TRANSAMINASES INCREASED [None]
